FAERS Safety Report 17767779 (Version 3)
Quarter: 2021Q1

REPORT INFORMATION
  Report Type: Report from Study
  Country: IT (occurrence: IT)
  Receive Date: 20200511
  Receipt Date: 20210223
  Transmission Date: 20210419
  Serious: Yes (Death, Hospitalization, Other)
  Sender: FDA-Public Use
  Company Number: IT-ALEXION PHARMACEUTICALS INC-A202005609

PATIENT
  Age: 67 Year
  Sex: Male

DRUGS (2)
  1. SOLIRIS [Suspect]
     Active Substance: ECULIZUMAB
     Indication: COVID-19 TREATMENT
     Dosage: 900 MG, Q2W
     Route: 065
     Dates: start: 20200412, end: 20200419
  2. SOLIRIS [Suspect]
     Active Substance: ECULIZUMAB
     Indication: OFF LABEL USE

REACTIONS (6)
  - COVID-19 [Fatal]
  - Off label use [Recovered/Resolved]
  - Ischaemic stroke [Unknown]
  - Severe acute respiratory syndrome [Fatal]
  - Ischaemic cardiomyopathy [Unknown]
  - Chronic obstructive pulmonary disease [Unknown]

NARRATIVE: CASE EVENT DATE: 20200412
